FAERS Safety Report 21072178 (Version 1)
Quarter: 2022Q3

REPORT INFORMATION
  Report Type: Report from Study
  Country: HR (occurrence: HR)
  Receive Date: 20220712
  Receipt Date: 20220712
  Transmission Date: 20221027
  Serious: Yes (Hospitalization, Other)
  Sender: FDA-Public Use
  Company Number: HR-TAKEDA-2022TUS045577

PATIENT
  Age: 3 Year
  Sex: Male
  Weight: 12.7 kg

DRUGS (8)
  1. TEDUGLUTIDE [Suspect]
     Active Substance: TEDUGLUTIDE
     Indication: Short-bowel syndrome
     Dosage: 0.5 MILLIGRAM
     Route: 058
     Dates: start: 20201201
  2. TEDUGLUTIDE [Suspect]
     Active Substance: TEDUGLUTIDE
     Indication: Short-bowel syndrome
     Dosage: 0.5 MILLIGRAM
     Route: 058
     Dates: start: 20201201
  3. TEDUGLUTIDE [Suspect]
     Active Substance: TEDUGLUTIDE
     Indication: Short-bowel syndrome
     Dosage: 0.5 MILLIGRAM
     Route: 058
     Dates: start: 20201201
  4. TEDUGLUTIDE [Suspect]
     Active Substance: TEDUGLUTIDE
     Indication: Short-bowel syndrome
     Dosage: 0.5 MILLIGRAM
     Route: 058
     Dates: start: 20201201
  5. NEXIUM [Concomitant]
     Active Substance: ESOMEPRAZOLE MAGNESIUM
     Indication: Short-bowel syndrome
     Dosage: 10 MILLIGRAM
     Route: 048
     Dates: start: 201903
  6. GARAMYCIN [Concomitant]
     Active Substance: GENTAMICIN SULFATE
     Indication: Short-bowel syndrome
     Dosage: 20 MILLIGRAM
     Route: 048
     Dates: start: 201903
  7. CHOLECALCIFEROL [Concomitant]
     Active Substance: CHOLECALCIFEROL
     Indication: Short-bowel syndrome
     Dosage: 16000 INTERNATIONAL UNIT
     Route: 048
     Dates: start: 201903
  8. Ferrum Lek [Concomitant]
     Indication: Short-bowel syndrome
     Dosage: 30 MILLIGRAM
     Route: 048
     Dates: start: 201903

REACTIONS (1)
  - Device physical property issue [Recovering/Resolving]

NARRATIVE: CASE EVENT DATE: 20220701
